FAERS Safety Report 10514088 (Version 2)
Quarter: 2014Q4

REPORT INFORMATION
  Report Type: Spontaneous
  Country: CA (occurrence: CA)
  Receive Date: 20141013
  Receipt Date: 20141013
  Transmission Date: 20150528
  Serious: Yes (Other)
  Sender: FDA-Public Use
  Company Number: CA-PFIZER INC-2014247623

PATIENT
  Age: 58 Year
  Sex: Male
  Weight: 89.3 kg

DRUGS (4)
  1. CLONAZEPAM. [Concomitant]
     Active Substance: CLONAZEPAM
     Dosage: 0.25 MG TWICE DAILY AS NEEDED (RARELY USED)
  2. PRISTIQ EXTENDED RELEASE [Suspect]
     Active Substance: DESVENLAFAXINE SUCCINATE
     Indication: POST-TRAUMATIC STRESS DISORDER
     Dosage: 50 MG, 1X/DAY
     Route: 048
     Dates: start: 20140731, end: 20140904
  3. PRAZOSIN [Concomitant]
     Active Substance: PRAZOSIN
     Dosage: 3 MG EVERY NIGHT
  4. KADIAN [Concomitant]
     Active Substance: MORPHINE SULFATE
     Dosage: 90 MG, EVERY 12 HOURS

REACTIONS (1)
  - Sleep paralysis [Not Recovered/Not Resolved]

NARRATIVE: CASE EVENT DATE: 20140801
